FAERS Safety Report 16874372 (Version 1)
Quarter: 2019Q4

REPORT INFORMATION
  Report Type: Spontaneous
  Country: CA (occurrence: CA)
  Receive Date: 20191001
  Receipt Date: 20191001
  Transmission Date: 20200122
  Serious: Yes (Other)
  Sender: FDA-Public Use
  Company Number: CA-TEVA-2019-CA-1115081

PATIENT
  Sex: Female

DRUGS (2)
  1. SPIRONOLACTONE. [Suspect]
     Active Substance: SPIRONOLACTONE
     Indication: PRODUCT USED FOR UNKNOWN INDICATION
     Dosage: 200 MILLIGRAM DAILY;
     Route: 065
  2. ESTRACE [Concomitant]
     Active Substance: ESTRADIOL

REACTIONS (3)
  - Depression [Unknown]
  - Suicidal ideation [Unknown]
  - Decreased appetite [Unknown]
